FAERS Safety Report 12778615 (Version 2)
Quarter: 2018Q2

REPORT INFORMATION
  Report Type: Spontaneous
  Country: SE (occurrence: SE)
  Receive Date: 20160926
  Receipt Date: 20180427
  Transmission Date: 20180711
  Serious: Yes (Death, Hospitalization)
  Sender: FDA-Public Use
  Company Number: SE-BIOVITRUM-2016SE0744

PATIENT
  Age: 23 Year
  Sex: Female

DRUGS (4)
  1. KINERET [Suspect]
     Active Substance: ANAKINRA
     Indication: STILL^S DISEASE
     Dates: start: 2014
  2. STEROIDS [Concomitant]
     Active Substance: UNSPECIFIED INGREDIENT
     Indication: STILL^S DISEASE
     Dosage: ^HIGH DOSE^
  3. MTX [Concomitant]
     Active Substance: METHOTREXATE SODIUM
     Indication: STILL^S DISEASE
  4. CSA [Concomitant]
     Active Substance: CYCLOSPORINE
     Indication: STILL^S DISEASE

REACTIONS (4)
  - Sepsis [Fatal]
  - Histiocytosis haematophagic [Fatal]
  - Eosinophilia [Fatal]
  - Pulmonary hypertension [Fatal]

NARRATIVE: CASE EVENT DATE: 201512
